FAERS Safety Report 4613452-9 (Version None)
Quarter: 2005Q1

REPORT INFORMATION
  Report Type: 
  Country: None (occurrence: None)
  Receive Date: 20050316
  Receipt Date: 20050301
  Transmission Date: 20050727
  Serious: Yes (Hospitalization, Other)
  Sender: FDA-Public Use
  Company Number: 2005BI004360

PATIENT
  Age: 60 Year
  Sex: Female
  Weight: 68 kg

DRUGS (5)
  1. AVONEX [Suspect]
     Indication: MULTIPLE SCLEROSIS
     Dosage: 30 UG; QW; IM
     Route: 030
     Dates: start: 20040301
  2. ELTROXIN [Concomitant]
  3. COVERSYL [Concomitant]
  4. ZOTON [Concomitant]
  5. DIFENE [Concomitant]

REACTIONS (1)
  - GASTROINTESTINAL CARCINOMA [None]
